FAERS Safety Report 13946725 (Version 1)
Quarter: 2017Q3

REPORT INFORMATION
  Report Type: Not Available
  Country: US (occurrence: US)
  Receive Date: 20170907
  Receipt Date: 20170907
  Transmission Date: 20171128
  Serious: No
  Sender: FDA-Public Use
  Company Number: US-3M-2017-US-002689

PATIENT
  Sex: Female

DRUGS (1)
  1. PERIDEX [Suspect]
     Active Substance: CHLORHEXIDINE GLUCONATE
     Dosage: 1 CAPFUL TWICE DAILY
     Route: 048
     Dates: start: 20170302, end: 20170305

REACTIONS (2)
  - Oral mucosal blistering [Recovered/Resolved]
  - Oral mucosal erythema [Recovered/Resolved]

NARRATIVE: CASE EVENT DATE: 20170305
